FAERS Safety Report 7724164-7 (Version None)
Quarter: 2011Q3

REPORT INFORMATION
  Report Type: 
  Country: None (occurrence: None)
  Receive Date: 20110901
  Receipt Date: 20110826
  Transmission Date: 20111222
  Serious: Yes (Hospitalization)
  Sender: FDA-Public Use
  Company Number: FR-ROCHE-799218

PATIENT
  Sex: Female

DRUGS (4)
  1. KEPPRA [Concomitant]
     Indication: EPILEPSY
     Route: 048
     Dates: start: 20100901
  2. NAPROXEN [Suspect]
     Route: 048
     Dates: start: 20110627, end: 20110710
  3. KEPPRA [Concomitant]
     Route: 048
  4. LAMICTAL [Concomitant]
     Indication: EPILEPSY
     Route: 048

REACTIONS (1)
  - PARTIAL SEIZURES [None]
